FAERS Safety Report 23294459 (Version 1)
Quarter: 2023Q4

REPORT INFORMATION
  Report Type: Spontaneous
  Country: US (occurrence: US)
  Receive Date: 20231213
  Receipt Date: 20231213
  Transmission Date: 20240110
  Serious: Yes (Other)
  Sender: FDA-Public Use
  Company Number: US-PFIZER INC-PV202300200141

PATIENT
  Age: 72 Year
  Sex: Female
  Weight: 63.3 kg

DRUGS (4)
  1. IBRANCE [Suspect]
     Active Substance: PALBOCICLIB
     Indication: Breast cancer female
     Dosage: 125 MG, CYCLIC (TAKE ONE CAPSULE, ORAL, DAILY X21 DAYS OFF 7)
     Route: 048
     Dates: start: 20230501
  2. IBRANCE [Suspect]
     Active Substance: PALBOCICLIB
     Indication: Metastases to bone
  3. ARIMIDEX [Suspect]
     Active Substance: ANASTROZOLE
     Indication: Breast cancer female
     Dosage: 1 MG, DAILY
     Dates: start: 20230501
  4. ARIMIDEX [Suspect]
     Active Substance: ANASTROZOLE
     Indication: Metastases to bone

REACTIONS (1)
  - Clostridium difficile colitis [Unknown]
